FAERS Safety Report 11675826 (Version 2)
Quarter: 2015Q4

REPORT INFORMATION
  Report Type: Spontaneous
  Country: DE (occurrence: DE)
  Receive Date: 20151028
  Receipt Date: 20151130
  Transmission Date: 20160304
  Serious: Yes (Death)
  Sender: FDA-Public Use
  Company Number: DE-SA-2015SA169439

PATIENT

DRUGS (2)
  1. CLEXANE MULTIDOSE [Suspect]
     Active Substance: ENOXAPARIN SODIUM
     Route: 051
  2. CLEXANE MULTIDOSE [Suspect]
     Active Substance: ENOXAPARIN SODIUM
     Route: 051

REACTIONS (2)
  - Thrombosis [Fatal]
  - Embolism [Fatal]

NARRATIVE: CASE EVENT DATE: 2015
